FAERS Safety Report 21140889 (Version 7)
Quarter: 2023Q4

REPORT INFORMATION
  Report Type: Spontaneous
  Country: CA (occurrence: CA)
  Receive Date: 20220728
  Receipt Date: 20231208
  Transmission Date: 20240110
  Serious: Yes (Other)
  Sender: FDA-Public Use
  Company Number: CA-CELLTRION INC.-2022CA007962

PATIENT

DRUGS (23)
  1. INFLECTRA [Suspect]
     Active Substance: INFLIXIMAB-DYYB
     Indication: Colitis ulcerative
     Dosage: 5 MG/KG, INDUCTION DOSES AT 0, 2, 6 WEEKS, THEN EVERY 8 WEEKS
     Route: 042
     Dates: start: 20200909
  2. INFLECTRA [Suspect]
     Active Substance: INFLIXIMAB-DYYB
     Dosage: 5 MG/KG, INDUCTION DOSES AT 0, 2, 6 WEEKS, THEN EVERY 8 WEEKS
     Route: 042
     Dates: start: 20210217
  3. INFLECTRA [Suspect]
     Active Substance: INFLIXIMAB-DYYB
     Dosage: 7500 UG/KG EVERY 6 WEEKS
     Route: 042
     Dates: start: 20210331
  4. INFLECTRA [Suspect]
     Active Substance: INFLIXIMAB-DYYB
     Dosage: 700 MG, SUPPOSED TO RECEIVE 7.5 MG/KG
     Route: 042
     Dates: start: 20210414
  5. INFLECTRA [Suspect]
     Active Substance: INFLIXIMAB-DYYB
     Dosage: 7500 UG/KG EVERY 6 WEEKS
     Route: 042
     Dates: start: 20220303
  6. INFLECTRA [Suspect]
     Active Substance: INFLIXIMAB-DYYB
     Dosage: MISSING 2 VIALS
     Route: 042
  7. INFLECTRA [Suspect]
     Active Substance: INFLIXIMAB-DYYB
     Dosage: 698 MG (SUPPOSED TO RECEIVE 7.5 MG/KG), EVERY 6 WEEKS
     Route: 042
     Dates: start: 20220824
  8. INFLECTRA [Suspect]
     Active Substance: INFLIXIMAB-DYYB
     Dosage: 698 MG (SUPPOSED TO RECEIVE 7.5 MG/KG), EVERY 6 WEEKS
     Route: 042
     Dates: start: 20220824
  9. INFLECTRA [Suspect]
     Active Substance: INFLIXIMAB-DYYB
     Dosage: 700 MG(SUPPOSED TO RECEIVE 7.5 MG/KG), EVERY 6 WEEKS
     Route: 042
     Dates: start: 20221005
  10. INFLECTRA [Suspect]
     Active Substance: INFLIXIMAB-DYYB
     Dosage: 700 MG, SUPPOSED TO RECEIVE 7.5MG/KG
     Route: 042
     Dates: start: 20221116
  11. INFLECTRA [Suspect]
     Active Substance: INFLIXIMAB-DYYB
     Dosage: 7500 UG/KG EVERY 6 WEEKS
     Route: 042
     Dates: start: 20221230
  12. INFLECTRA [Suspect]
     Active Substance: INFLIXIMAB-DYYB
     Dosage: 705 MG, (7.5 MG/KG) EVERY 6 WEEKS
     Route: 042
     Dates: start: 20230209
  13. INFLECTRA [Suspect]
     Active Substance: INFLIXIMAB-DYYB
     Dosage: 705 MG, (7.5 MG/KG) EVERY 6 WEEKS
     Route: 042
     Dates: start: 20230209
  14. INFLECTRA [Suspect]
     Active Substance: INFLIXIMAB-DYYB
     Dosage: 7500 UG/KG EVERY 6 WEEKS
     Route: 042
     Dates: start: 20231017
  15. INFLECTRA [Suspect]
     Active Substance: INFLIXIMAB-DYYB
     Dosage: 7500 UG/KG EVERY 6 WEEKS (690MG (7.5MG/KG), 6 WEEKS)
     Route: 042
     Dates: start: 20231128
  16. ASPIRIN [Concomitant]
     Active Substance: ASPIRIN
     Dosage: 1 DF, UNKNOWN DOSE, FREQUENCY
  17. CIPROFLOXACIN [Concomitant]
     Active Substance: CIPROFLOXACIN
     Indication: Infection
     Dosage: 1 DF, UNKNOWN DOSE, FREQUENCY
  18. CLOPIDOGREL [Concomitant]
     Active Substance: CLOPIDOGREL BISULFATE
     Dosage: 1 DF, UNKNOWN DOSE, FREQUENCY
  19. FOLIC ACID [Concomitant]
     Active Substance: FOLIC ACID
     Dosage: 1 DF, UNKNOWN DOSE, FREQUENCY
  20. METHOTREXATE [Concomitant]
     Active Substance: METHOTREXATE
     Dosage: 25 MG, WEEKLY
     Route: 042
     Dates: start: 202004
  21. PANTOPRAZOLE SODIUM [Concomitant]
     Active Substance: PANTOPRAZOLE SODIUM
     Dosage: 1 DF,  UNKNOWN DOSE, FREQUENCY
  22. PERINDOPRIL [Concomitant]
     Active Substance: PERINDOPRIL
     Dosage: 1 DF, UNKNOWN DOSE, FREQUENCY
  23. ROSUVASTATIN [Concomitant]
     Active Substance: ROSUVASTATIN
     Dosage: 1 DF, UNKNOWN DOSE, FREQUENCY

REACTIONS (10)
  - Weight increased [Unknown]
  - Cough [Recovering/Resolving]
  - COVID-19 [Recovering/Resolving]
  - Fatigue [Recovering/Resolving]
  - Back pain [Recovering/Resolving]
  - Off label use [Unknown]
  - Off label use [Unknown]
  - Off label use [Unknown]
  - Intentional product use issue [Unknown]
  - Incorrect dose administered [Unknown]

NARRATIVE: CASE EVENT DATE: 20210331
